FAERS Safety Report 10598222 (Version 1)
Quarter: 2014Q4

REPORT INFORMATION
  Report Type: Spontaneous
  Country: TW (occurrence: None)
  Receive Date: 20141119
  Receipt Date: 20141119
  Transmission Date: 20150529
  Serious: Yes (Other)
  Sender: FDA-Public Use
  Company Number: COR_00147_2014

PATIENT
  Age: 62 Year
  Sex: Female

DRUGS (2)
  1. PACLITAXEL (PACLITAXEL) [Suspect]
     Active Substance: PACLITAXEL
     Indication: OVARIAN EPITHELIAL CANCER
     Dates: start: 2008
  2. CARBOPLATIN (CARBOPLATIN) [Suspect]
     Active Substance: CARBOPLATIN
     Indication: OVARIAN EPITHELIAL CANCER
     Dates: start: 2008

REACTIONS (12)
  - Fatigue [None]
  - Vomiting [None]
  - Psychomotor retardation [None]
  - Depressed mood [None]
  - Decreased interest [None]
  - Decreased appetite [None]
  - Depression suicidal [None]
  - Nausea [None]
  - Somnolence [None]
  - Disturbance in attention [None]
  - Flushing [None]
  - Negative thoughts [None]
